FAERS Safety Report 21374496 (Version 1)
Quarter: 2022Q3

REPORT INFORMATION
  Report Type: Spontaneous
  Country: GB (occurrence: GB)
  Receive Date: 20220926
  Receipt Date: 20220926
  Transmission Date: 20221027
  Serious: Yes (Hospitalization, Other)
  Sender: FDA-Public Use
  Company Number: None

PATIENT
  Age: 68 Year
  Sex: Female
  Weight: 92 kg

DRUGS (94)
  1. AMOXICILLIN [Suspect]
     Active Substance: AMOXICILLIN
     Indication: Abdominal discomfort
     Dosage: 125 MG/ 5 ML
     Route: 065
  2. AMOXICILLIN [Suspect]
     Active Substance: AMOXICILLIN
     Dosage: 125 MG/ 5 ML, THERAPY END DATE : NOT ASKED
     Route: 065
     Dates: start: 20210904
  3. CHARCOAL ACTIVATED [Suspect]
     Active Substance: ACTIVATED CHARCOAL
     Indication: Product used for unknown indication
     Dosage: 750 MG, UNIT DOSE : 750 MG,
     Route: 065
  4. CHARCOAL ACTIVATED [Suspect]
     Active Substance: ACTIVATED CHARCOAL
     Indication: Product used for unknown indication
     Dosage: 750 MILLIGRAM DAILY; UNIT DOSE : 750 MG, FREQUENCY ; 1 , FREQUENCY TIME : 1 DAYS,
     Route: 065
  5. CHARCOAL ACTIVATED [Suspect]
     Active Substance: ACTIVATED CHARCOAL
     Dosage: 750 MG, UNIT DOSE : 750 MG
     Route: 065
  6. CIPROFLOXACIN HYDROCHLORIDE [Suspect]
     Active Substance: CIPROFLOXACIN HYDROCHLORIDE
     Indication: Depression
     Dosage: 1000 MILLIGRAM DAILY; THERAPY END DATE : NOT ASKED, UNIT DOSE : 1000 MG, FREQUENCY ; 1 , FREQUENCY T
     Route: 065
     Dates: start: 20200917
  7. CIPROFLOXACIN HYDROCHLORIDE [Suspect]
     Active Substance: CIPROFLOXACIN HYDROCHLORIDE
     Indication: Abdominal discomfort
     Dosage: UNK
     Route: 065
  8. CIPROFLOXACIN HYDROCHLORIDE [Suspect]
     Active Substance: CIPROFLOXACIN HYDROCHLORIDE
     Indication: Rheumatoid arthritis
     Dosage: 1000 MILLIGRAM DAILY; UNIT DOSE : 1000 MG, FREQUENCY ; 1 , FREQUENCY TIME : 1 DAYS
     Route: 065
  9. CIPROFLOXACIN HYDROCHLORIDE [Suspect]
     Active Substance: CIPROFLOXACIN HYDROCHLORIDE
     Dosage: 1000 MILLIGRAM DAILY;  UNIT DOSE : 1000 MG, FREQUENCY ; 1 , FREQUENCY TIME : 1 DAYS
     Route: 065
  10. CIPROFLOXACIN HYDROCHLORIDE [Suspect]
     Active Substance: CIPROFLOXACIN HYDROCHLORIDE
     Dosage: 1000 MILLIGRAM DAILY; UNIT DOSE : 1000 MG, FREQUENCY ; 1 , FREQUENCY TIME : 1 DAYS
     Route: 065
  11. CIPROFLOXACIN HYDROCHLORIDE [Suspect]
     Active Substance: CIPROFLOXACIN HYDROCHLORIDE
     Dosage: 1000 MILLIGRAM DAILY; UNIT DOSE : 1000 MG, FREQUENCY ; 1 , FREQUENCY TIME : 1 DAYS
     Route: 065
  12. CIPROFLOXACIN HYDROCHLORIDE [Suspect]
     Active Substance: CIPROFLOXACIN HYDROCHLORIDE
     Dosage: UNK
     Route: 065
  13. CIPROFLOXACIN HYDROCHLORIDE [Suspect]
     Active Substance: CIPROFLOXACIN HYDROCHLORIDE
     Dosage: 1000 MILLIGRAM DAILY; THERAPY END DATE : NOT ASKED, UNIT DOSE : 1000 MG, FREQUENCY ; 1 , FREQUENCY T
     Route: 065
     Dates: start: 20100917
  14. CIPROFLOXACIN HYDROCHLORIDE [Suspect]
     Active Substance: CIPROFLOXACIN HYDROCHLORIDE
     Dosage: UNK
     Route: 065
  15. IRBESARTAN [Suspect]
     Active Substance: IRBESARTAN
     Indication: Abdominal discomfort
     Dosage: 150 MILLIGRAM DAILY; THERAPY END DATE : NOT ASKED, UNIT DOSE : 150 MG, FREQUENCY ; 1 , FREQUENCY TIM
     Route: 065
     Dates: start: 20100917
  16. IRBESARTAN [Suspect]
     Active Substance: IRBESARTAN
     Dosage: 150 GRAM DAILY; UNIT DOSE : 150 GRAM, FREQUENCY ; 1 , FREQUENCY TIME : 1 DAYS
     Route: 065
  17. IRBESARTAN [Suspect]
     Active Substance: IRBESARTAN
     Dosage: 150 GRAM DAILY;  UNIT DOSE : 150 GRAM, FREQUENCY ; 1 , FREQUENCY TIME : 1 DAYS
     Route: 065
  18. IRBESARTAN [Suspect]
     Active Substance: IRBESARTAN
     Dosage: 150 MILLIGRAM DAILY; THERAPY END DATE : NOT ASKED, UNIT DOSE : 150 MG, FREQUENCY ; 1 , FREQUENCY TIM
     Route: 065
     Dates: start: 20100917
  19. IRBESARTAN [Suspect]
     Active Substance: IRBESARTAN
     Dosage: 150 GRAM DAILY;  THERAPY END DATE : NOT ASKED, UNIT DOSE : 150 G, FREQUENCY ; 1 , FREQUENCY TIME : 1
     Route: 065
     Dates: start: 20100912
  20. METHOTREXATE [Suspect]
     Active Substance: METHOTREXATE
     Indication: Rheumatoid arthritis
     Dosage: UNK UNK, QW, FREQUENCY : 1 , FREQUENCY TIME : 1 WEEKS
     Route: 065
  21. METHOTREXATE [Suspect]
     Active Substance: METHOTREXATE
     Dosage: (WEEKLY (AT 17.5, WEEKLY), UNIT DOSE : 18 MG, FREQUENCY ; 1 , FREQUENCY TIME : 1 WEEKS
     Route: 065
  22. METHOTREXATE [Suspect]
     Active Substance: METHOTREXATE
     Dosage: (WEEKLY), THERAPY END DATE : NOT ASKED, UNIT DOSE : 17.5 MG, FREQUENCY ; 1 , FREQUENCY TIME : 1 WEE
     Route: 065
     Dates: start: 20100917
  23. METHOTREXATE [Suspect]
     Active Substance: METHOTREXATE
     Dosage: UNK
     Route: 065
  24. METHOTREXATE [Suspect]
     Active Substance: METHOTREXATE
     Dosage: , UNIT DOSE : 18 MG, FREQUENCY ; 1 , FREQUENCY TIME : 1 WEEKS
     Route: 065
  25. METHOTREXATE [Suspect]
     Active Substance: METHOTREXATE
     Dosage: UNK, QW, FREQUENCY ; 1 , FREQUENCY TIME : 1 WEEKS
     Route: 065
  26. OMEPRAZOLE [Suspect]
     Active Substance: OMEPRAZOLE
     Indication: Abdominal discomfort
     Dosage: 20 MILLIGRAM DAILY;  THERAPY END DATE : NOT ASKED, UNIT DOSE : 20 MG, FREQUENCY ; 1 , FREQUENCY TIME
     Route: 065
     Dates: start: 20200917
  27. OMEPRAZOLE [Suspect]
     Active Substance: OMEPRAZOLE
     Dosage: 480 MILLIGRAM DAILY;  20 MG 2XDAY), UNIT DOSE : 20 MG, FREQUENCY ; 1 , FREQUENCY TIME : 1 HOURS,
     Route: 065
  28. OMEPRAZOLE [Suspect]
     Active Substance: OMEPRAZOLE
     Dosage: 20 MILLIGRAM DAILY; , UNIT DOSE : 20 MG, FREQUENCY ; 1 , FREQUENCY TIME : 1 DAYS,
     Route: 065
  29. OMEPRAZOLE [Suspect]
     Active Substance: OMEPRAZOLE
     Dosage: 480 MILLIGRAM DAILY;  (20 MG 2XDAY), UNIT DOSE : 20 MG, FREQUENCY ; 1 , FREQUENCY TIME : 1 HOURS
     Route: 065
  30. OMEPRAZOLE [Suspect]
     Active Substance: OMEPRAZOLE
     Dosage: 20 MILLIGRAM DAILY; UNIT DOSE : 20 MG, FREQUENCY ; 1 , FREQUENCY TIME : 1 DAYS,
     Route: 065
  31. OMEPRAZOLE [Suspect]
     Active Substance: OMEPRAZOLE
     Dosage: 40 MILLIGRAM DAILY; (20 MG, 2X/DAY), THERAPY END DATE : NOT ASKED, UNIT DOSE : 40 MG, FREQUENCY ; 1
     Route: 065
     Dates: start: 20100917
  32. OMEPRAZOLE [Suspect]
     Active Substance: OMEPRAZOLE
     Dosage: 80 MILLIGRAM DAILY;  THERAPY END DATE : NOT ASKED, UNIT DOSE : 80 MG, FREQUENCY ; 1 , FREQUENCY TIME
     Route: 065
     Dates: start: 20200917
  33. OMEPRAZOLE [Suspect]
     Active Substance: OMEPRAZOLE
     Dosage: 480 MILLIGRAM DAILY;  20 MG, 2X/DAY), UNIT DOSE : 20 MG, FREQUENCY ; 1 , FREQUENCY TIME : 1 HOURS
     Route: 065
  34. OMEPRAZOLE [Suspect]
     Active Substance: OMEPRAZOLE
     Dosage: 40 MILLIGRAM DAILY;  UNIT DOSE : 20 MG, FREQUENCY ; 2 , FREQUENCY TIME : 1 DAYS
     Route: 065
  35. OMEPRAZOLE [Suspect]
     Active Substance: OMEPRAZOLE
     Dosage: 20 MILLIGRAM DAILY;  THERAPY END DATE : NOT ASKED, UNIT DOSE : 20 MG, FREQUENCY ; 1 , FREQUENCY TIME
     Route: 065
     Dates: start: 20100917
  36. OMEPRAZOLE [Suspect]
     Active Substance: OMEPRAZOLE
     Dosage: 80 MILLIGRAM DAILY; THERAPY END DATE : NOT ASKED, UNIT DOSE : 80 MG, FREQUENCY ; 1 , FREQUENCY TIME
     Route: 065
     Dates: start: 20100917
  37. OMEPRAZOLE [Suspect]
     Active Substance: OMEPRAZOLE
     Dosage: 480 MILLIGRAM DAILY; 20 MG, 2X/DAY), UNIT DOSE : 20 MG, FREQUENCY ; 1 , FREQUENCY TIME : 1 HOURS
     Route: 065
  38. OMEPRAZOLE [Suspect]
     Active Substance: OMEPRAZOLE
     Dosage: 80 MILLIGRAM DAILY;  UNIT DOSE : 80 MG, FREQUENCY ; 1 , FREQUENCY TIME : 1 DAYS
     Route: 065
  39. VENLAFAXINE [Suspect]
     Active Substance: VENLAFAXINE HYDROCHLORIDE
     Indication: Depression
     Dosage: 225 MILLIGRAM DAILY;  UNIT DOSE : 225 MG, FREQUENCY ; 1 , FREQUENCY TIME : 1 DAYS
     Route: 065
  40. VENLAFAXINE [Suspect]
     Active Substance: VENLAFAXINE HYDROCHLORIDE
     Indication: Rheumatoid arthritis
     Dosage: 225 MILLIGRAM DAILY;  UNIT DOSE : 225 MG, FREQUENCY ; 1 , FREQUENCY TIME : 1 DAYS
     Route: 065
  41. VENLAFAXINE HYDROCHLORIDE [Suspect]
     Active Substance: VENLAFAXINE HYDROCHLORIDE
     Indication: Rheumatoid arthritis
     Dosage: 225 MILLIGRAM DAILY; UNIT DOSE : 225 MG, FREQUENCY ; 1 , FREQUENCY TIME : 1 DAYS
     Route: 065
  42. GUANIDINE [Suspect]
     Active Substance: GUANIDINE
     Indication: Depression
     Dosage: UNK UNK, QD (1,3-DIPHENYLGUANIDINE), FREQUENCY ; 1 , FREQUENCY TIME : 1 DAYS,
     Route: 065
  43. GUANIDINE [Suspect]
     Active Substance: GUANIDINE
     Indication: Abdominal discomfort
     Dosage: 750 MILLIGRAM DAILY;  UNIT DOSE : 750 MG, FREQUENCY ; 1 , FREQUENCY TIME : 1 DAYS
     Route: 065
  44. GUANIDINE [Suspect]
     Active Substance: GUANIDINE
     Dosage: 750 MG (1,3-DIPHENYLGUANIDINE), UNIT DOSE : 750 MG
     Route: 065
  45. LACTOBACILLUS RHAMNOSUS [Suspect]
     Active Substance: LACTOBACILLUS RHAMNOSUS
     Indication: Abdominal discomfort
     Dosage: 750 MG, UNIT DOSE : 750 MG
     Route: 065
  46. LACTOBACILLUS RHAMNOSUS [Suspect]
     Active Substance: LACTOBACILLUS RHAMNOSUS
     Indication: Depression
  47. PHYLLOCONTIN [Suspect]
     Active Substance: AMINOPHYLLINE
     Indication: Product used for unknown indication
     Dosage: 400 MILLIGRAM DAILY;  UNIT DOSE : 400 MG, FREQUENCY ; 1 , FREQUENCY TIME : 1 DAYS
     Route: 065
  48. PHYLLOCONTIN [Suspect]
     Active Substance: AMINOPHYLLINE
     Dosage: 400 MILLIGRAM DAILY; , UNIT DOSE : 400 MG, FREQUENCY ; 1 , FREQUENCY TIME : 1 DAYS
     Route: 065
  49. PHYLLOCONTIN [Suspect]
     Active Substance: AMINOPHYLLINE
     Dosage: 400 MILLIGRAM DAILY; THERAPY END DATE : NOT ASKED, UNIT DOSE : 400 MG, FREQUENCY ; 1 , FREQUENCY TIM
     Route: 065
     Dates: start: 20100917
  50. PHYLLOCONTIN [Suspect]
     Active Substance: AMINOPHYLLINE
     Dosage: 400 MILLIGRAM DAILY;   THERAPY END DATE : NOT ASKED, UNIT DOSE : 400 MG, FREQUENCY ; 1 , FREQUENCY T
     Route: 065
     Dates: start: 20200917
  51. ZINC [Suspect]
     Active Substance: ZINC
     Indication: Depression
     Dosage: 750 MG,  UNIT DOSE : 750 MG
     Route: 065
  52. ZINC [Suspect]
     Active Substance: ZINC
     Indication: Abdominal discomfort
     Dosage: UNK (DIETHYLDITHIOCARBAMATE)
     Route: 065
  53. ZINC [Suspect]
     Active Substance: ZINC
     Dosage: 750 MILLIGRAM DAILY;  (DIETHYLDITHIOCARBAMATE),  UNIT DOSE : 750 MG, FREQUENCY ; 1 , FREQUENCY TIME
     Route: 065
  54. ZINC [Suspect]
     Active Substance: ZINC
     Dosage: UNK
     Route: 065
  55. BIFIDOBACTERIUM BIFIDUM [Suspect]
     Active Substance: BIFIDOBACTERIUM BIFIDUM
     Indication: Abdominal discomfort
     Dosage: 750 MG, UNIT DOSE : 750 MG
     Route: 065
  56. BIFIDOBACTERIUM BIFIDUM [Suspect]
     Active Substance: BIFIDOBACTERIUM BIFIDUM
     Indication: Depression
  57. CARBAMAZEPINE [Suspect]
     Active Substance: CARBAMAZEPINE
     Indication: Product used for unknown indication
     Dosage: 750 MILLIGRAM DAILY; THERAPY END DATE : NOT ASKED, UNIT DOSE : 750 MG, FREQUENCY ; 1 , FREQUENCY TIM
     Route: 065
     Dates: start: 20100917
  58. CARBAMAZEPINE [Suspect]
     Active Substance: CARBAMAZEPINE
     Dosage: 750 MILLIGRAM DAILY; THERAPY END DATE : NOT ASKED, UNIT DOSE : 750 MG, FREQUENCY ; 1 , FREQUENCY TIM
     Route: 065
     Dates: start: 20200917
  59. CARBAMAZEPINE [Suspect]
     Active Substance: CARBAMAZEPINE
     Dosage: 750 MILLIGRAM DAILY; UNIT DOSE : 750 MG, FREQUENCY ; 1 , FREQUENCY TIME : 1 DAYS
     Route: 065
  60. CARBAMAZEPINE [Suspect]
     Active Substance: CARBAMAZEPINE
     Dosage: 750 MILLIGRAM DAILY; , UNIT DOSE : 750 MG, FREQUENCY ; 1 , FREQUENCY TIME : 1 DAYS
     Route: 065
  61. CARBAMAZEPINE [Suspect]
     Active Substance: CARBAMAZEPINE
     Dosage: 750 MILLIGRAM DAILY;  UNIT DOSE : 750 MG, FREQUENCY ; 1 , FREQUENCY TIME : 1 DAYS
     Route: 065
  62. CARBAMAZEPINE [Suspect]
     Active Substance: CARBAMAZEPINE
     Dosage: 750 MILLIGRAM DAILY;  THERAPY END DATE : NOT ASKED, UNIT DOSE : 750 MG, FREQUENCY ; 1 , FREQUENCY TI
     Route: 065
     Dates: start: 20210917
  63. CARBAMAZEPINE [Suspect]
     Active Substance: CARBAMAZEPINE
     Dosage: UNK
     Route: 065
  64. CARBOCYSTEINE [Suspect]
     Active Substance: CARBOCYSTEINE
     Indication: Rheumatoid arthritis
     Dosage: 750 MILLIGRAM DAILY; THERAPY END DATE : NOT ASKED, UNIT DOSE : 750 MG, FREQUENCY ; 1 , FREQUENCY TIM
     Route: 065
     Dates: start: 20200917
  65. CARBOCYSTEINE [Suspect]
     Active Substance: CARBOCYSTEINE
     Dosage: 750 MILLIGRAM DAILY; UNIT DOSE : 750 MG, FREQUENCY ; 1 , FREQUENCY TIME : 1 DAYS
     Route: 065
  66. CARBOCYSTEINE [Suspect]
     Active Substance: CARBOCYSTEINE
     Dosage: 750 MILLIGRAM DAILY; THERAPY END DATE : NOT ASKED, UNIT DOSE : 750 MG, FREQUENCY ; 1 , FREQUENCY TIM
     Route: 065
     Dates: start: 20210917
  67. CARBOCYSTEINE [Suspect]
     Active Substance: CARBOCYSTEINE
     Dosage: 750 MILLIGRAM DAILY; UNIT DOSE : 750 MG, FREQUENCY ; 1 , FREQUENCY TIME : 1 DAYS
     Route: 065
  68. CARBOCYSTEINE [Suspect]
     Active Substance: CARBOCYSTEINE
     Dosage: 750 MILLIGRAM DAILY; UNIT DOSE : 750 MG, FREQUENCY ; 1 , FREQUENCY TIME : 1 DAYS
     Route: 065
  69. CARBOCYSTEINE [Suspect]
     Active Substance: CARBOCYSTEINE
     Dosage: 750 MILLIGRAM DAILY;  THERAPY END DATE : NOT ASKED, UNIT DOSE : 750 MG, FREQUENCY ; 1 , FREQUENCY TI
     Route: 065
     Dates: start: 20120917
  70. CARBOCYSTEINE [Suspect]
     Active Substance: CARBOCYSTEINE
     Dosage: 750 MILLIGRAM DAILY; THERAPY END DATE : NOT ASKED, UNIT DOSE : 750 MG, FREQUENCY ; 1 , FREQUENCY TIM
     Route: 065
     Dates: start: 20100917
  71. AMINOPHYLLINE [Suspect]
     Active Substance: AMINOPHYLLINE
     Indication: Product used for unknown indication
     Dosage: 400 MILLIGRAM DAILY;  THERAPY END DATE : NOT ASKED, UNIT DOSE : 400 MG, FREQUENCY ; 1 , FREQUENCY TI
     Route: 065
     Dates: start: 20100917
  72. AMINOPHYLLINE [Suspect]
     Active Substance: AMINOPHYLLINE
     Dosage: 400 MILLIGRAM DAILY;  UNIT DOSE : 400 MG, FREQUENCY ; 1 , FREQUENCY TIME : 1 DAYS
     Route: 065
  73. AMINOPHYLLINE [Suspect]
     Active Substance: AMINOPHYLLINE
     Dosage: 400 MILLIGRAM DAILY;  THERAPY END DATE : NOT ASKED, UNIT DOSE : 400 MG, FREQUENCY ; 1 , FREQUENCY TI
     Route: 065
     Dates: start: 20200917
  74. AMINOPHYLLINE [Suspect]
     Active Substance: AMINOPHYLLINE
     Dosage: 400 MILLIGRAM DAILY; UNIT DOSE : 400 MG, FREQUENCY ; 1 , FREQUENCY TIME : 1 DAYS
     Route: 065
  75. ENBREL [Suspect]
     Active Substance: ETANERCEPT
     Indication: Rheumatoid arthritis
     Dosage: UNK, (MYCLIC PEN)
     Route: 065
  76. ENBREL [Suspect]
     Active Substance: ETANERCEPT
     Dosage: MYCLIC PEN, THERAPY END DATE : NOT ASKED, UNIT DOSE : 50 MG, FREQUENCY ; 1 , FREQUENCY TIME : 1 WEE
     Route: 065
     Dates: start: 20210917
  77. ENBREL [Suspect]
     Active Substance: ETANERCEPT
     Dosage: MYCLIC PEN, THERAPY END DATE : NOT ASKED, UNIT DOSE : 50 MG, FREQUENCY ; 1 , FREQUENCY TIME : 1 WEE
     Route: 058
     Dates: start: 20100917
  78. ENBREL [Suspect]
     Active Substance: ETANERCEPT
     Dosage: UNK, (MYCLIC PEN)
     Route: 065
  79. SULFAGUANIDINE [Concomitant]
     Active Substance: SULFAGUANIDINE
     Indication: Abdominal discomfort
     Dosage: 750 MILLIGRAM DAILY;  UNIT DOSE : 750 MG, FREQUENCY ; 1 , FREQUENCY TIME : 1 DAYS
     Route: 065
  80. SULFAGUANIDINE [Concomitant]
     Active Substance: SULFAGUANIDINE
     Dosage: 750 MILLIGRAM DAILY;  UNIT DOSE : 750 MG, FREQUENCY ; 1 , FREQUENCY TIME : 1 DAYS
     Route: 065
  81. THEOPHYLLINE [Concomitant]
     Active Substance: THEOPHYLLINE
     Indication: Depression
     Dosage: 750 MILLIGRAM DAILY; UNIT DOSE : 750 MG, FREQUENCY ; 1 , FREQUENCY TIME : 1 DAYS
     Route: 065
  82. THEOPHYLLINE [Concomitant]
     Active Substance: THEOPHYLLINE
     Dosage: 750 MILLIGRAM DAILY; UNIT DOSE : 750 MG, FREQUENCY ; 1 , FREQUENCY TIME : 1 DAYS
     Route: 065
  83. BENDROFLUMETHIAZIDE [Concomitant]
     Active Substance: BENDROFLUMETHIAZIDE
     Indication: Pituitary tumour
     Dosage: UNK
     Route: 065
  84. BENDROFLUMETHIAZIDE [Concomitant]
     Active Substance: BENDROFLUMETHIAZIDE
     Indication: Depression
     Dosage: UNK
     Route: 065
  85. BENDROFLUMETHIAZIDE [Concomitant]
     Active Substance: BENDROFLUMETHIAZIDE
     Indication: Pituitary tumour
     Dosage: 750 MG, UNIT DOSE : 750 MG
     Route: 065
  86. CABERGOLINE [Concomitant]
     Active Substance: CABERGOLINE
     Indication: Pituitary tumour
     Dosage: UNK
     Route: 065
  87. CABERGOLINE [Concomitant]
     Active Substance: CABERGOLINE
     Indication: Empty sella syndrome
     Dosage: UNK
     Route: 065
  88. CABERGOLINE [Concomitant]
     Active Substance: CABERGOLINE
     Dosage: UNK
     Route: 065
  89. EZETIMIBE [Concomitant]
     Active Substance: EZETIMIBE
     Indication: Product used for unknown indication
     Dosage: UNK
     Route: 065
  90. FOLIC ACID [Concomitant]
     Active Substance: FOLIC ACID
     Indication: Product used for unknown indication
     Dosage: UNK
     Route: 065
  91. FOLIC ACID [Concomitant]
     Active Substance: FOLIC ACID
     Dosage: UNK
     Route: 065
  92. ORUVAIL [Concomitant]
     Active Substance: KETOPROFEN
     Indication: Empty sella syndrome
     Dosage: UNK
     Route: 065
  93. ORUVAIL [Concomitant]
     Active Substance: KETOPROFEN
     Dosage: UNK
     Route: 065
  94. ORUVAIL [Concomitant]
     Active Substance: KETOPROFEN
     Dosage: UNK
     Route: 065

REACTIONS (12)
  - Lower respiratory tract infection [Not Recovered/Not Resolved]
  - Rash [Not Recovered/Not Resolved]
  - Obesity [Unknown]
  - Abdominal discomfort [Unknown]
  - Amyloid arthropathy [Unknown]
  - Arthropathy [Unknown]
  - Overdose [Unknown]
  - Pulmonary pain [Unknown]
  - Intentional product misuse [Unknown]
  - Drug abuse [Unknown]
  - Product dose omission issue [Unknown]
  - Off label use [Unknown]

NARRATIVE: CASE EVENT DATE: 20201001
